FAERS Safety Report 17534623 (Version 3)
Quarter: 2020Q2

REPORT INFORMATION
  Report Type: Spontaneous
  Country: DE (occurrence: DE)
  Receive Date: 20200312
  Receipt Date: 20200518
  Transmission Date: 20200713
  Serious: Yes (Hospitalization, Other)
  Sender: FDA-Public Use
  Company Number: DE-MYLANLABS-2020M1026294

PATIENT
  Age: 78 Year
  Sex: Female

DRUGS (18)
  1. CO-TRIMOXAZOL A [Suspect]
     Active Substance: SULFAMETHOXAZOLE\TRIMETHOPRIM
     Indication: PRODUCT USED FOR UNKNOWN INDICATION
     Dosage: UNK
  2. CLINDAMYCIN. [Suspect]
     Active Substance: CLINDAMYCIN
     Indication: CEREBRAL TOXOPLASMOSIS
     Dosage: UNK
  3. PREDNISOLONE. [Suspect]
     Active Substance: PREDNISOLONE
     Indication: RHEUMATOID ARTHRITIS
     Dosage: 5 MG, QD (LOW-DOSE)
  4. PYRIMETHAMINE [Suspect]
     Active Substance: PYRIMETHAMINE
     Indication: INFECTION REACTIVATION
  5. METHOTREXATE. [Suspect]
     Active Substance: METHOTREXATE
     Indication: RHEUMATOID ARTHRITIS
     Dosage: UNK
  6. CLINDAMYCIN. [Suspect]
     Active Substance: CLINDAMYCIN
     Indication: INFECTION REACTIVATION
  7. SULFADIAZINE. [Suspect]
     Active Substance: SULFADIAZINE
     Indication: CEREBRAL TOXOPLASMOSIS
     Dosage: 2 G, BID
  8. LEUCOVORIN                         /00566701/ [Concomitant]
     Active Substance: LEUCOVORIN
     Indication: CEREBRAL TOXOPLASMOSIS
     Dosage: 15 MILLIGRAM, QD
  9. PRIVIGEN [Concomitant]
     Active Substance: HUMAN IMMUNOGLOBULIN G
     Indication: BLOOD IMMUNOGLOBULIN G DECREASED
     Dosage: 30 GRAM WEEK, 4WEEK
     Route: 042
  10. TRIAMCINOLON                       /00031901/ [Concomitant]
     Active Substance: TRIAMCINOLONE
     Indication: RHEUMATOID ARTHRITIS
     Dosage: 40 MILLIGRAM
     Route: 014
  11. DIPYRONE [Concomitant]
     Active Substance: DIPYRONE
     Indication: ANALGESIC THERAPY
     Dosage: UNK
  12. ATOVAQUONE. [Suspect]
     Active Substance: ATOVAQUONE
     Indication: CEREBRAL TOXOPLASMOSIS
     Dosage: 10 ML, BID
  13. ATOVAQUONE. [Suspect]
     Active Substance: ATOVAQUONE
     Indication: INFECTION REACTIVATION
  14. SULFADIAZINE. [Suspect]
     Active Substance: SULFADIAZINE
     Indication: INFECTION REACTIVATION
     Dosage: UNK, 2X2G
  15. LEUCOVORIN                         /00566701/ [Concomitant]
     Active Substance: LEUCOVORIN
     Indication: INFECTION REACTIVATION
  16. PRIVIGEN [Concomitant]
     Active Substance: HUMAN IMMUNOGLOBULIN G
     Indication: RHEUMATOID ARTHRITIS
  17. NALOXONE W/TILIDINE [Concomitant]
     Active Substance: NALOXONE HYDROCHLORIDE\TILIDINE HYDROCHLORIDE
     Indication: ANALGESIC THERAPY
     Dosage: UNK
  18. PYRIMETHAMINE [Suspect]
     Active Substance: PYRIMETHAMINE
     Indication: CEREBRAL TOXOPLASMOSIS
     Dosage: 50 MILLIGRAM, QD

REACTIONS (41)
  - Interleukin-2 receptor increased [Unknown]
  - Insomnia [Unknown]
  - Muscle atrophy [Unknown]
  - Joint vibration [Unknown]
  - Chills [Unknown]
  - Pancytopenia [Recovering/Resolving]
  - Infection reactivation [Recovering/Resolving]
  - Dysdiadochokinesis [Unknown]
  - Feeling cold [Unknown]
  - Tremor [Unknown]
  - Dermatitis exfoliative generalised [Unknown]
  - Arthritis [Unknown]
  - Dizziness [Unknown]
  - Dysstasia [Unknown]
  - Epstein-Barr virus infection [Unknown]
  - Headache [Unknown]
  - Cerebral toxoplasmosis [Unknown]
  - Gait disturbance [Unknown]
  - Tachycardia [Unknown]
  - Leukocytosis [Unknown]
  - Rheumatoid factor increased [Unknown]
  - Asthenia [Unknown]
  - Pruritus [Recovered/Resolved]
  - Drug hypersensitivity [Unknown]
  - Protein total increased [Unknown]
  - Blood immunoglobulin G decreased [Unknown]
  - Restlessness [Unknown]
  - Glomerular filtration rate decreased [Unknown]
  - Pleocytosis [Unknown]
  - Central nervous system lesion [Unknown]
  - Polyneuropathy [Unknown]
  - CSF oligoclonal band present [Unknown]
  - Sensory disturbance [Unknown]
  - Intracranial mass [Unknown]
  - Neurological symptom [Unknown]
  - Anti-cyclic citrullinated peptide antibody positive [Unknown]
  - Malaise [Unknown]
  - Muscular weakness [Unknown]
  - Infection protozoal [Unknown]
  - C-reactive protein increased [Unknown]
  - Somnolence [Unknown]
